FAERS Safety Report 11654917 (Version 1)
Quarter: 2015Q4

REPORT INFORMATION
  Report Type: Spontaneous
  Country: FR (occurrence: FR)
  Receive Date: 20151023
  Receipt Date: 20151023
  Transmission Date: 20160304
  Serious: Yes (Other)
  Sender: FDA-Public Use
  Company Number: FR-EMD SERONO-8048453

PATIENT
  Age: 44 Year
  Sex: Female

DRUGS (2)
  1. GONAL-F [Suspect]
     Active Substance: FOLLITROPIN
     Indication: OVULATION INDUCTION
     Dosage: 37.5 (UNSPECIFIED UNITS) DAILY
     Dates: start: 20150612, end: 20150616
  2. OVITRELLE [Suspect]
     Active Substance: CHORIOGONADOTROPIN ALFA
     Indication: OVULATION INDUCTION
     Dosage: 400 (UNSPECIFIED UNITS)
     Route: 058
     Dates: start: 20150617, end: 20150617

REACTIONS (1)
  - Demyelination [Recovered/Resolved]

NARRATIVE: CASE EVENT DATE: 20150617
